FAERS Safety Report 12888669 (Version 10)
Quarter: 2018Q1

REPORT INFORMATION
  Report Type: Spontaneous
  Country: US (occurrence: US)
  Receive Date: 20161027
  Receipt Date: 20180108
  Transmission Date: 20180508
  Serious: Yes (Life-Threatening, Hospitalization, Other)
  Sender: FDA-Public Use
  Company Number: US-PFIZER INC-2016496953

PATIENT
  Age: 70 Year
  Sex: Female
  Weight: 57.6 kg

DRUGS (19)
  1. SUTENT [Suspect]
     Active Substance: SUNITINIB MALATE
     Dosage: 25 MG, CYCLIC (2 WEEKS ON AND ONE WEEK OFF)
     Route: 048
     Dates: end: 20170331
  2. NEURONTIN [Concomitant]
     Active Substance: GABAPENTIN
     Dosage: 300 MG, DAILY [100 MG IN THE MORNING, 200 MG AT NIGHT]
  3. ZOFRAN [Concomitant]
     Active Substance: ONDANSETRON HYDROCHLORIDE
     Indication: NAUSEA
     Dosage: 4 MG, AS NEEDED [EVERY 8 (EIGHT) HOURS AS NEEDED]
     Route: 048
     Dates: start: 20161025, end: 20161101
  4. SUTENT [Suspect]
     Active Substance: SUNITINIB MALATE
     Dosage: 37.5 MG, CYCLIC (2 WEEKS ON/1 WEEK OFF)
     Dates: start: 20161216, end: 201704
  5. GABAPENTIN. [Concomitant]
     Active Substance: GABAPENTIN
     Dosage: 300 MG, UNK
  6. DELTASONE [Concomitant]
     Active Substance: PREDNISONE
     Dosage: UNK
  7. VITAMIN C [Concomitant]
     Active Substance: ASCORBIC ACID
     Dosage: 500 MG, DAILY
     Route: 048
  8. SUTENT [Suspect]
     Active Substance: SUNITINIB MALATE
     Dosage: 50 MG, CYCLIC (DAILY, 2 WEEKS ON/1 WEEK OFF)
     Route: 048
     Dates: start: 20161017, end: 20161020
  9. DELTASONE [Concomitant]
     Active Substance: PREDNISONE
     Dosage: 20 MG, DAILY
  10. PROTONIX [Concomitant]
     Active Substance: PANTOPRAZOLE SODIUM
     Dosage: 40 MG, 1X/DAY [EVERY MORNING BEFORE BREAKFAST]
     Route: 048
     Dates: start: 20161031
  11. SUTENT [Suspect]
     Active Substance: SUNITINIB MALATE
     Dosage: 25 MG, CYCLIC (TAKE ONE CAPSULE BY MOUTH DAILY FOR 2 WEEKS THEN ONE WEEK OFF)
     Route: 048
     Dates: start: 20171117
  12. ASPIRIN. [Concomitant]
     Active Substance: ASPIRIN
     Indication: ANTICOAGULANT THERAPY
     Dosage: 325 MG, UNK
  13. ASPIRIN. [Concomitant]
     Active Substance: ASPIRIN
     Dosage: 81 MG, 1X/DAY
     Dates: start: 20170806
  14. GABAPENTIN. [Concomitant]
     Active Substance: GABAPENTIN
     Dosage: UNK
  15. LEVAQUIN [Concomitant]
     Active Substance: LEVOFLOXACIN
     Indication: PNEUMONIA BACTERIAL
     Dosage: 750 MG, DAILY
     Route: 048
     Dates: start: 20161031, end: 20161105
  16. SUTENT [Suspect]
     Active Substance: SUNITINIB MALATE
     Indication: METASTATIC RENAL CELL CARCINOMA
     Dosage: 50 MG, CYCLIC (1 CAPSULE BY MOUTH DAILY FOR 14 DAYS THEN HOLD FOR 7 DAYS BEFORE REPEATING)
     Route: 048
     Dates: start: 20161014
  17. SUTENT [Suspect]
     Active Substance: SUNITINIB MALATE
     Dosage: 37.5 MG, CYCLIC (1 DAILY FOR 14 DAYS HOLD 7 DAYS + REPEAT)
     Route: 048
  18. DELTASONE [Concomitant]
     Active Substance: PREDNISONE
     Indication: NEUROPATHY PERIPHERAL
     Dosage: 10 MG, DAILY
  19. HYDROCODONE/ACETAMINOPHEN [Concomitant]
     Active Substance: ACETAMINOPHEN\HYDROCODONE
     Dosage: (HYDROCODONE: 5MG/ PARACETAMOL: 325 MG)

REACTIONS (23)
  - Platelet count decreased [Recovered/Resolved]
  - Post procedural haemorrhage [Recovered/Resolved]
  - Neoplasm progression [Recovered/Resolved]
  - Vomiting [Unknown]
  - Eye haemorrhage [Recovered/Resolved]
  - Headache [Recovered/Resolved]
  - Diarrhoea [Recovered/Resolved]
  - Pruritus [Unknown]
  - Abdominal pain [Recovered/Resolved]
  - Retching [Recovered/Resolved]
  - Dehydration [Recovered/Resolved]
  - Rash [Unknown]
  - Purpura [Unknown]
  - Thrombocytopenia [Recovered/Resolved]
  - Jaundice [Recovered/Resolved]
  - Pyrexia [Recovered/Resolved]
  - Hepatitis [Unknown]
  - Pain [Recovered/Resolved]
  - Abnormal faeces [Recovered/Resolved]
  - Diarrhoea [Recovered/Resolved]
  - Malaise [Recovered/Resolved]
  - Blood bilirubin increased [Recovered/Resolved]
  - Nausea [Recovered/Resolved]

NARRATIVE: CASE EVENT DATE: 201610
